FAERS Safety Report 4937493-7 (Version None)
Quarter: 2006Q1

REPORT INFORMATION
  Report Type: 
  Country: None (occurrence: None)
  Receive Date: 20060309
  Receipt Date: 20060228
  Transmission Date: 20060701
  Serious: Yes (Other)
  Sender: FDA-Public Use
  Company Number: US-JNJFOC-20060300253

PATIENT
  Age: 54 Year
  Sex: Female

DRUGS (8)
  1. REMICADE [Suspect]
     Route: 042
  2. REMICADE [Suspect]
     Indication: RHEUMATOID ARTHRITIS
     Route: 042
  3. CELCEPT [Concomitant]
  4. CELCEPT [Concomitant]
  5. CELCEPT [Concomitant]
  6. CELCEPT [Concomitant]
  7. PREDNISONE [Concomitant]
  8. SOLU-MEDROL [Concomitant]
     Route: 042

REACTIONS (6)
  - AMNESIA [None]
  - BALANCE DISORDER [None]
  - CONDITION AGGRAVATED [None]
  - HYPOAESTHESIA [None]
  - SYSTEMIC LUPUS ERYTHEMATOSUS [None]
  - VISION BLURRED [None]
